FAERS Safety Report 9253388 (Version 4)
Quarter: 2014Q1

REPORT INFORMATION
  Report Type: Spontaneous
  Country: US (occurrence: US)
  Receive Date: 20130425
  Receipt Date: 20140131
  Transmission Date: 20141002
  Serious: Yes (Hospitalization, Disabling)
  Sender: FDA-Public Use
  Company Number: US-ASTRAZENECA-2013SE27368

PATIENT
  Age: 47 Year
  Sex: Female
  Weight: 72.6 kg

DRUGS (27)
  1. NEXIUM [Suspect]
     Indication: ULCER
     Dosage: DAILY
     Route: 048
     Dates: start: 1998, end: 2010
  2. NEXIUM [Suspect]
     Indication: GASTROOESOPHAGEAL REFLUX DISEASE
     Dosage: DAILY
     Route: 048
     Dates: start: 1998, end: 2010
  3. NEXIUM [Suspect]
     Indication: DYSPEPSIA
     Dosage: DAILY
     Route: 048
     Dates: start: 1998, end: 2010
  4. NEXIUM [Suspect]
     Indication: ULCER
     Route: 048
     Dates: start: 20050211
  5. NEXIUM [Suspect]
     Indication: GASTROOESOPHAGEAL REFLUX DISEASE
     Route: 048
     Dates: start: 20050211
  6. NEXIUM [Suspect]
     Indication: DYSPEPSIA
     Route: 048
     Dates: start: 20050211
  7. NEXIUM [Suspect]
     Indication: ULCER
     Route: 048
     Dates: start: 20050620
  8. NEXIUM [Suspect]
     Indication: GASTROOESOPHAGEAL REFLUX DISEASE
     Route: 048
     Dates: start: 20050620
  9. NEXIUM [Suspect]
     Indication: DYSPEPSIA
     Route: 048
     Dates: start: 20050620
  10. ZYPREXA [Suspect]
     Route: 065
     Dates: start: 20020430
  11. ZOMAX [Concomitant]
     Indication: ANXIETY
     Dates: start: 1979
  12. ZOMAX [Concomitant]
     Indication: MOOD SWINGS
     Dates: start: 1979
  13. ZOLOFT [Concomitant]
     Indication: BIPOLAR DISORDER
  14. THORAZINE [Concomitant]
     Indication: SCHIZOPHRENIA
     Dates: start: 2000
  15. RISPERDAL [Concomitant]
     Indication: BIPOLAR DISORDER
     Dates: start: 1995
  16. ACTOS [Concomitant]
     Indication: DIABETES MELLITUS
     Dates: start: 1998
  17. ZANTAC [Concomitant]
     Dates: start: 1985
  18. TAGAMET [Concomitant]
     Dates: start: 1980
  19. ROLAIDS [Concomitant]
     Dates: start: 1980
  20. PEPTO-BISMOL [Concomitant]
     Dates: start: 1980
  21. MILK OF MAGNESIA [Concomitant]
     Dates: start: 1980
  22. SEROQUEL [Concomitant]
  23. ABILIFY [Concomitant]
     Route: 048
     Dates: start: 20040415
  24. ZOCOR [Concomitant]
     Route: 048
     Dates: start: 20040810
  25. LISINOPRIL [Concomitant]
     Route: 048
     Dates: start: 20041227
  26. LORATADINE [Concomitant]
     Dosage: ONCE DAILY
     Route: 048
     Dates: start: 20120220
  27. XANAX [Concomitant]
     Route: 048

REACTIONS (15)
  - Nervous system disorder [Unknown]
  - Musculoskeletal disorder [Unknown]
  - Schizophrenia [Unknown]
  - Post-traumatic stress disorder [Unknown]
  - Bipolar disorder [Unknown]
  - Pain [Unknown]
  - Osteoporosis [Unknown]
  - Type 2 diabetes mellitus [Unknown]
  - Bone disorder [Unknown]
  - Multiple fractures [Unknown]
  - Amnesia [Unknown]
  - Arthritis [Unknown]
  - Chronic obstructive pulmonary disease [Unknown]
  - Spinal osteoarthritis [Unknown]
  - Wrist fracture [Unknown]
